FAERS Safety Report 16104366 (Version 1)
Quarter: 2019Q1

REPORT INFORMATION
  Report Type: Spontaneous
  Country: US (occurrence: US)
  Receive Date: 20190322
  Receipt Date: 20190322
  Transmission Date: 20190418
  Serious: No
  Sender: FDA-Public Use
  Company Number: US-PFIZER INC-2019117769

PATIENT
  Age: 56 Year
  Sex: Female
  Weight: 99.79 kg

DRUGS (3)
  1. NEURONTIN [Suspect]
     Active Substance: GABAPENTIN
     Indication: TARDIVE DYSKINESIA
     Dosage: 300 MG, 3X/DAY (TWO CAPSULES IN MORNING, TWO CAPSULES AT NOON AND TWO CAPSULES AT NIGHT)
     Route: 048
  2. NEURONTIN [Suspect]
     Active Substance: GABAPENTIN
     Indication: RESTLESS LEGS SYNDROME
     Dosage: 300 MG, UNK
  3. NEURONTIN [Suspect]
     Active Substance: GABAPENTIN
     Indication: AKATHISIA
     Dosage: UNK

REACTIONS (5)
  - Product use in unapproved indication [Unknown]
  - Body height decreased [Unknown]
  - Therapeutic response unexpected [Unknown]
  - Product colour issue [Unknown]
  - Product packaging quantity issue [Unknown]
